FAERS Safety Report 13675945 (Version 1)
Quarter: 2017Q2

REPORT INFORMATION
  Report Type: Spontaneous
  Country: FR (occurrence: FR)
  Receive Date: 20170621
  Receipt Date: 20170621
  Transmission Date: 20170830
  Serious: Yes (Other)
  Sender: FDA-Public Use
  Company Number: FR-MYLANLABS-2017M1036758

PATIENT

DRUGS (1)
  1. GEMCITABINE MYLAN 40 MG/ML SOLUTION ? DILUER POUR PERFUSION [Suspect]
     Active Substance: GEMCITABINE HYDROCHLORIDE
     Indication: BLADDER TRANSITIONAL CELL CARCINOMA RECURRENT
     Dosage: 2000 MG, UNK
     Route: 042
     Dates: start: 20170512

REACTIONS (2)
  - Wrong drug administered [Unknown]
  - Drug ineffective [Unknown]

NARRATIVE: CASE EVENT DATE: 20170512
